FAERS Safety Report 8406612-2 (Version None)
Quarter: 2012Q2

REPORT INFORMATION
  Report Type: 
  Country: None (occurrence: None)
  Receive Date: 20120604
  Receipt Date: 20120523
  Transmission Date: 20120825
  Serious: Yes (Other)
  Sender: FDA-Public Use
  Company Number: US-ELI_LILLY_AND_COMPANY-US201203000278

PATIENT
  Sex: Female

DRUGS (7)
  1. FORTEO [Suspect]
     Dosage: 20 UG, QD
     Route: 065
  2. SYNTHROID [Concomitant]
     Dosage: UNK
  3. HYDROCODONE [Concomitant]
     Dosage: UNK
  4. FORTEO [Suspect]
     Dosage: 20 UG, QD
     Route: 065
  5. FORTEO [Suspect]
     Indication: OSTEOPOROSIS
     Dosage: 20 UG, QD
     Route: 065
     Dates: start: 20120119
  6. DIOVAN [Concomitant]
     Dosage: UNK
  7. PREDNISONE [Concomitant]

REACTIONS (5)
  - SPINAL DISORDER [None]
  - PAIN IN EXTREMITY [None]
  - ARTHRALGIA [None]
  - ARTHRITIS [None]
  - SPINAL COMPRESSION FRACTURE [None]
